FAERS Safety Report 16478183 (Version 1)
Quarter: 2019Q2

REPORT INFORMATION
  Report Type: Spontaneous
  Country: CA (occurrence: CA)
  Receive Date: 20190626
  Receipt Date: 20190626
  Transmission Date: 20190711
  Serious: Yes (Other)
  Sender: FDA-Public Use
  Company Number: CA-PFIZER INC-2018451911

PATIENT
  Age: 19 Year
  Sex: Male
  Weight: 77 kg

DRUGS (5)
  1. XELJANZ [Suspect]
     Active Substance: TOFACITINIB CITRATE
     Dosage: 10 MG TWICE DAILY
     Route: 048
     Dates: start: 201905, end: 2019
  2. PREDNISONE. [Concomitant]
     Active Substance: PREDNISONE
     Indication: COLITIS ULCERATIVE
     Dosage: 25 MG, DAILY
     Dates: start: 201809
  3. XELJANZ [Suspect]
     Active Substance: TOFACITINIB CITRATE
     Indication: COLITIS ULCERATIVE
     Dosage: 10 MG TWICE DAILY
     Route: 048
     Dates: start: 20181117, end: 20190318
  4. XELJANZ [Suspect]
     Active Substance: TOFACITINIB CITRATE
     Dosage: 5 MG TWICE DAILY
     Route: 048
     Dates: start: 20190319, end: 201905
  5. IMURAN [Concomitant]
     Active Substance: AZATHIOPRINE
     Indication: COLITIS ULCERATIVE
     Dosage: 3.5 DF, 1X/DAY

REACTIONS (6)
  - Inflammation [Unknown]
  - Colitis ulcerative [Not Recovered/Not Resolved]
  - Therapeutic response shortened [Unknown]
  - Iron deficiency anaemia [Unknown]
  - Haemoglobin decreased [Unknown]
  - Therapeutic product effect incomplete [Unknown]

NARRATIVE: CASE EVENT DATE: 201812
